FAERS Safety Report 8319493-2 (Version None)
Quarter: 2012Q2

REPORT INFORMATION
  Report Type: 
  Country: None (occurrence: None)
  Receive Date: 20120427
  Receipt Date: 20120417
  Transmission Date: 20120825
  Serious: Yes (Other)
  Sender: FDA-Public Use
  Company Number: US-BAYER-2012-007452

PATIENT
  Age: 29 Year
  Sex: Female
  Weight: 47.619 kg

DRUGS (2)
  1. YAZ [Suspect]
  2. TRIAZOLAM [Concomitant]
     Dosage: 0.25 MG, UNK
     Dates: start: 20080505

REACTIONS (1)
  - THROMBOSIS [None]
